FAERS Safety Report 24833314 (Version 2)
Quarter: 2025Q3

REPORT INFORMATION
  Report Type: Spontaneous
  Country: US (occurrence: US)
  Receive Date: 20250111
  Receipt Date: 20250810
  Transmission Date: 20251020
  Serious: Yes (Death, Other)
  Sender: ALEXION PHARMACEUTICALS
  Company Number: US-AstraZeneca-CH-00741894A

PATIENT
  Age: 80 Year
  Sex: Female

DRUGS (1)
  1. WAINUA [Suspect]
     Active Substance: EPLONTERSEN
     Indication: Hereditary neuropathic amyloidosis
     Dosage: 45 MILLIGRAM, YEARLY
     Dates: start: 20240808

REACTIONS (2)
  - Death [Fatal]
  - Amyloidosis [Unknown]

NARRATIVE: CASE EVENT DATE: 20241021
